FAERS Safety Report 11275269 (Version 2)
Quarter: 2015Q3

REPORT INFORMATION
  Report Type: Spontaneous
  Country: IN (occurrence: IN)
  Receive Date: 20150716
  Receipt Date: 20150731
  Transmission Date: 20151125
  Serious: Yes (Other)
  Sender: FDA-Public Use
  Company Number: IN-ACCORD-032216

PATIENT
  Age: 42 Year
  Sex: Male

DRUGS (1)
  1. TOPIRAMATE. [Suspect]
     Active Substance: TOPIRAMATE
     Indication: ALCOHOLISM
     Dosage: INITIALLY STARTED AT 50 MG/DAY, THEN GRADUALLY INCREASED TO 200 MG/DAY OVER 3 WEEKS

REACTIONS (1)
  - Priapism [Recovered/Resolved]
